FAERS Safety Report 17104500 (Version 1)
Quarter: 2019Q4

REPORT INFORMATION
  Report Type: Spontaneous
  Country: US (occurrence: US)
  Receive Date: 20191107
  Receipt Date: 20191107
  Transmission Date: 20200122
  Serious: No
  Sender: FDA-Public Use
  Company Number: None

PATIENT
  Sex: Female

DRUGS (1)
  1. ENBREL [Suspect]
     Active Substance: ETANERCEPT
     Indication: PSORIASIS
     Route: 058
     Dates: start: 20190926

REACTIONS (8)
  - Rash [None]
  - Insurance issue [None]
  - Psoriasis [None]
  - Pain [None]
  - Fatigue [None]
  - Feeling abnormal [None]
  - Insomnia [None]
  - Arthralgia [None]
